FAERS Safety Report 10687633 (Version 1)
Quarter: 2015Q1

REPORT INFORMATION
  Report Type: Spontaneous
  Country: FR (occurrence: FR)
  Receive Date: 20150102
  Receipt Date: 20150102
  Transmission Date: 20150720
  Serious: Yes (Hospitalization)
  Sender: FDA-Public Use
  Company Number: FR-SA-2014SA177613

PATIENT
  Age: 69 Year
  Sex: Male

DRUGS (4)
  1. DUOPLAVIN [Suspect]
     Active Substance: ASPIRIN\CLOPIDOGREL
     Route: 048
  2. VERAPAMIL [Suspect]
     Active Substance: VERAPAMIL HYDROCHLORIDE
     Dosage: REPORTED AS VERAPAMIL LP
     Route: 048
  3. PRAVASTATIN SODIUM. [Suspect]
     Active Substance: PRAVASTATIN SODIUM
     Route: 048
  4. APROVEL [Suspect]
     Active Substance: IRBESARTAN
     Dosage: APROVEL 300 MG, DOSE: 1 UNIT DAILY
     Route: 048

REACTIONS (1)
  - Axonal neuropathy [Unknown]

NARRATIVE: CASE EVENT DATE: 2006
